FAERS Safety Report 7437685-1 (Version None)
Quarter: 2011Q2

REPORT INFORMATION
  Report Type: 
  Country: None (occurrence: None)
  Receive Date: 20110426
  Receipt Date: 20110416
  Transmission Date: 20111010
  Serious: Yes (Other)
  Sender: FDA-Public Use
  Company Number: US-ROCHE-770004

PATIENT
  Sex: Male

DRUGS (2)
  1. PEGASYS [Suspect]
     Indication: HEPATITIS C
     Dosage: FORM: PRE-FILLED SYRINGE
     Route: 065
     Dates: start: 20110322
  2. RIBAVIRIN [Suspect]
     Indication: HEPATITIS C
     Dosage: 2 EVERY MORNING AND 3 EVERY EVENING
     Route: 065
     Dates: start: 20110322

REACTIONS (8)
  - VESSEL PUNCTURE SITE REACTION [None]
  - PYREXIA [None]
  - MALAISE [None]
  - PNEUMONIA [None]
  - PRODUCTIVE COUGH [None]
  - RESPIRATORY TRACT CONGESTION [None]
  - MYALGIA [None]
  - DYSPNOEA [None]
